FAERS Safety Report 16877409 (Version 1)
Quarter: 2019Q4

REPORT INFORMATION
  Report Type: Spontaneous
  Country: GB (occurrence: GB)
  Receive Date: 20191002
  Receipt Date: 20191002
  Transmission Date: 20200122
  Serious: Yes (Congenital Anomaly)
  Sender: FDA-Public Use
  Company Number: GB-PFIZER INC-2019424924

PATIENT

DRUGS (1)
  1. RAMIPRIL. [Suspect]
     Active Substance: RAMIPRIL
     Indication: HYPERTENSION
     Dosage: UNK UNK, UNK
     Route: 064

REACTIONS (4)
  - Oligohydramnios [Unknown]
  - Maternal exposure during pregnancy [Unknown]
  - Congenital renal disorder [Unknown]
  - Congenital urinary tract obstruction [Unknown]
